FAERS Safety Report 7042519-3 (Version None)
Quarter: 2010Q4

REPORT INFORMATION
  Report Type: 
  Country: None (occurrence: None)
  Receive Date: 20101013
  Receipt Date: 20100421
  Transmission Date: 20110411
  Serious: No
  Sender: FDA-Public Use
  Company Number: US-ASTRAZENECA-2010SE16681

PATIENT
  Age: 56 Year
  Sex: Male
  Weight: 77.1 kg

DRUGS (4)
  1. SYMBICORT [Suspect]
     Indication: ASTHMA
     Dosage: 2 PUFFS, BID
     Route: 055
     Dates: start: 20080101, end: 20100401
  2. SYMBICORT [Suspect]
     Indication: EMPHYSEMA
     Dosage: 2 PUFFS, BID
     Route: 055
     Dates: start: 20080101, end: 20100401
  3. TRAZODONE HCL [Concomitant]
     Dosage: 1 TABLET HS
  4. PROVENTIL-HFA [Concomitant]
     Indication: RESPIRATORY DISORDER

REACTIONS (3)
  - COUGH [None]
  - DRUG DOSE OMISSION [None]
  - DYSPNOEA [None]
